FAERS Safety Report 17902283 (Version 1)
Quarter: 2020Q2

REPORT INFORMATION
  Report Type: Spontaneous
  Country: US (occurrence: US)
  Receive Date: 20200616
  Receipt Date: 20200616
  Transmission Date: 20200714
  Serious: No
  Sender: FDA-Public Use
  Company Number: US-009507513-2006USA004709

PATIENT

DRUGS (1)
  1. REMERON [Suspect]
     Active Substance: MIRTAZAPINE
     Route: 048

REACTIONS (3)
  - Product availability issue [Unknown]
  - Product dose omission [Unknown]
  - No adverse event [Unknown]
